FAERS Safety Report 10890208 (Version 1)
Quarter: 2015Q1

REPORT INFORMATION
  Report Type: Spontaneous
  Country: FR (occurrence: FR)
  Receive Date: 20150305
  Receipt Date: 20150305
  Transmission Date: 20150721
  Serious: Yes (Hospitalization)
  Sender: FDA-Public Use
  Company Number: FR-JNJFOC-20150216921

PATIENT
  Age: 43 Year
  Sex: Female

DRUGS (12)
  1. ACTIFED RHUME [Suspect]
     Active Substance: ACETAMINOPHEN\PSEUDOEPHEDRINE HYDROCHLORIDE\TRIPROLIDINE HYDROCHLORIDE
     Indication: NASAL CONGESTION
     Route: 048
     Dates: start: 20150129, end: 20150130
  2. ACTIFED ETATS GRIPPAUX [Suspect]
     Active Substance: ACETAMINOPHEN\ASCORBIC ACID\CHLORPHENIRAMINE MALEATE
     Indication: NASAL CONGESTION
     Route: 048
     Dates: start: 20150129, end: 20150130
  3. ACTIFED RHUME JOUR ET NUIT [Suspect]
     Active Substance: ACETAMINOPHEN\DIPHENHYDRAMINE HYDROCHLORIDE\PSEUDOEPHEDRINE HYDROCHLORIDE
     Indication: NASAL CONGESTION
     Route: 048
     Dates: start: 20150129, end: 20150130
  4. OFLOXACIN. [Concomitant]
     Active Substance: OFLOXACIN
     Route: 065
  5. ACTIFED ALLERGIE [Suspect]
     Active Substance: CETIRIZINE HYDROCHLORIDE
     Route: 048
  6. ACTIFED ALLERGIE [Suspect]
     Active Substance: CETIRIZINE HYDROCHLORIDE
     Indication: NASAL CONGESTION
     Route: 048
     Dates: start: 20150129, end: 20150130
  7. ACTIFEDSIGN [Suspect]
     Active Substance: ACETAMINOPHEN\ASCORBIC ACID\CHLORPHENIRAMINE MALEATE
     Indication: NASAL CONGESTION
     Route: 048
     Dates: start: 20150129, end: 20150130
  8. INSULIN [Concomitant]
     Active Substance: INSULIN NOS
     Route: 065
  9. TARDYFERON [Suspect]
     Active Substance: FERROUS SULFATE\FOLIC ACID
     Indication: PRODUCT USED FOR UNKNOWN INDICATION
     Route: 048
     Dates: end: 20150203
  10. RENITEC (ENALAPRIL) [Concomitant]
     Active Substance: ENALAPRIL MALEATE
     Route: 065
  11. ACTIFED LP ALLERGIC RHINITIS [Suspect]
     Active Substance: CETIRIZINE HYDROCHLORIDE\PSEUDOEPHEDRINE HYDROCHLORIDE
     Indication: NASAL CONGESTION
     Route: 048
     Dates: start: 20150129, end: 20150130
  12. BACTRIM [Suspect]
     Active Substance: SULFAMETHOXAZOLE\TRIMETHOPRIM
     Indication: OSTEITIS
     Route: 048
     Dates: start: 20150127, end: 20150202

REACTIONS (4)
  - Nausea [Recovered/Resolved]
  - Rash [None]
  - Rash macular [Recovering/Resolving]
  - Vomiting [Recovered/Resolved]

NARRATIVE: CASE EVENT DATE: 201501
